FAERS Safety Report 4913628-7 (Version None)
Quarter: 2006Q1

REPORT INFORMATION
  Report Type: 
  Country: None (occurrence: None)
  Receive Date: 20060216
  Receipt Date: 20051025
  Transmission Date: 20060701
  Serious: Yes (Hospitalization)
  Sender: FDA-Public Use
  Company Number: US-AMGEN-US156252

PATIENT
  Sex: Female
  Weight: 105.8 kg

DRUGS (9)
  1. PROCRIT [Suspect]
     Indication: ANAEMIA
     Dates: start: 20051006, end: 20051006
  2. ATENOLOL [Concomitant]
  3. PAXIL [Concomitant]
  4. LOVASTATIN [Concomitant]
  5. PLAVIX [Concomitant]
  6. TRICOR [Concomitant]
  7. NEXIUM [Concomitant]
  8. NITRO [Concomitant]
  9. TORSEMIDE [Concomitant]

REACTIONS (4)
  - ANAPHYLACTIC REACTION [None]
  - CHEST PAIN [None]
  - DYSPNOEA [None]
  - TACHYCARDIA [None]
